FAERS Safety Report 5019459-4 (Version None)
Quarter: 2006Q2

REPORT INFORMATION
  Report Type: 
  Country: None (occurrence: None)
  Receive Date: 20060531
  Receipt Date: 20060518
  Transmission Date: 20061013
  Serious: Yes (Hospitalization)
  Sender: FDA-Public Use
  Company Number: 2006057414

PATIENT
  Age: 61 Year
  Sex: Male
  Weight: 111 kg

DRUGS (11)
  1. SUTENT [Suspect]
     Indication: METASTATIC RENAL CELL CARCINOMA
     Dosage: 50 MG, DAILY, ORAL
     Route: 048
  2. FEXOFENADINE HCL [Concomitant]
  3. METOPROLOL SUCCINATE [Concomitant]
  4. MANIDIPINE (MANIDIPINE) [Concomitant]
  5. CLONIDINE [Concomitant]
  6. DIHYDRALAZIN (DIHYDRALAZINE SULFATE) [Concomitant]
  7. CANDESARTAN (CANDESARTAN) [Concomitant]
  8. ASPIRIN [Concomitant]
  9. ISCADOR      (VISCUM ALBUM EXTRACT) [Concomitant]
  10. MULTIPLE VITAMINS (ASCORBIC ACID, ERGOCALCIFEROL, FOLIC ACID, RETINOL, [Concomitant]
  11. EZETIMIBE/SIMVASTATIN                     (EZETIMIBE, SIMVASTATIN) [Concomitant]

REACTIONS (6)
  - BLOOD CREATININE INCREASED [None]
  - CONDITION AGGRAVATED [None]
  - HAEMATURIA [None]
  - HYPERTENSION [None]
  - HYPOTENSION [None]
  - PROTEINURIA [None]
